FAERS Safety Report 16666993 (Version 1)
Quarter: 2019Q3

REPORT INFORMATION
  Report Type: Spontaneous
  Country: US (occurrence: US)
  Receive Date: 20190805
  Receipt Date: 20190805
  Transmission Date: 20191004
  Serious: No
  Sender: FDA-Public Use
  Company Number: US-AUROBINDO-AUR-APL-2019-038194

PATIENT

DRUGS (1)
  1. ROPIVACAINE HYDROCHLORIDE INJECTION USP 0.5 % [Suspect]
     Active Substance: ROPIVACAINE HYDROCHLORIDE
     Indication: PAIN MANAGEMENT
     Dosage: ONE TIME
     Dates: start: 20190624, end: 20190624

REACTIONS (4)
  - Dizziness [Recovered/Resolved]
  - Tinnitus [Recovered/Resolved]
  - Dysgeusia [Recovered/Resolved]
  - Nausea [Recovered/Resolved]

NARRATIVE: CASE EVENT DATE: 20190624
